FAERS Safety Report 8419008-4 (Version None)
Quarter: 2012Q2

REPORT INFORMATION
  Report Type: 
  Country: None (occurrence: None)
  Receive Date: 20120607
  Receipt Date: 20120605
  Transmission Date: 20120825
  Serious: Yes (Death)
  Sender: FDA-Public Use
  Company Number: US-ROCHE-1030278

PATIENT
  Sex: Female

DRUGS (11)
  1. AUGMENTIN [Concomitant]
  2. LUCENTIS [Suspect]
     Indication: PRODUCT USED FOR UNKNOWN INDICATION
     Route: 050
     Dates: start: 20111022, end: 20111028
  3. PLAVIX [Concomitant]
  4. CARDIZEM [Concomitant]
  5. BUMETANIDE [Concomitant]
  6. ZOCOR [Concomitant]
  7. PREMARIN [Concomitant]
  8. CYMBALTA [Concomitant]
  9. ASPIRIN [Concomitant]
  10. WARFARIN SODIUM [Concomitant]
  11. GLIPIZIDE [Concomitant]

REACTIONS (1)
  - DEATH [None]
